FAERS Safety Report 8924867 (Version 2)
Quarter: 2012Q4

REPORT INFORMATION
  Report Type: 
  Country: AT (occurrence: AT)
  Receive Date: 20121126
  Receipt Date: 20121205
  Transmission Date: 20130627
  Serious: Yes (Other)
  Sender: FDA-Public Use
  Company Number: AT-ROCHE-1159971

PATIENT
  Age: 17 Year
  Sex: Female
  Weight: 45 kg

DRUGS (7)
  1. ROACTEMRA [Suspect]
     Indication: JUVENILE ARTHRITIS
     Route: 065
     Dates: start: 20121113
  2. ROACTEMRA [Suspect]
     Indication: BEHCET^S SYNDROME
  3. ROACTEMRA [Suspect]
     Indication: FAMILIAL MEDITERRANEAN FEVER
  4. NOVALGIN [Suspect]
     Indication: PRODUCT USED FOR UNKNOWN INDICATION
     Route: 065
     Dates: start: 20121026, end: 20121101
  5. NOVALGIN [Suspect]
     Route: 065
     Dates: start: 20121107, end: 20121121
  6. TAZONAM [Concomitant]
     Route: 065
     Dates: end: 20121119
  7. NOVALGIN [Concomitant]
     Route: 065

REACTIONS (3)
  - Agranulocytosis [Recovered/Resolved]
  - Sepsis [Recovered/Resolved]
  - Granulocytosis [Unknown]
